FAERS Safety Report 8554585-4 (Version None)
Quarter: 2012Q3

REPORT INFORMATION
  Report Type: 
  Country: None (occurrence: None)
  Receive Date: 20120731
  Receipt Date: 20120725
  Transmission Date: 20120928
  Serious: Yes (Other)
  Sender: FDA-Public Use
  Company Number: US-PFIZER INC-2012144892

PATIENT
  Sex: Male

DRUGS (5)
  1. TRAMADOL HCL [Suspect]
     Indication: PAIN
     Dosage: 100 MG, 3X/DAY
  2. NEURONTIN [Suspect]
     Indication: PAIN
     Dosage: 300 MG, 3X/DAY
  3. LYRICA [Suspect]
     Indication: NEUROPATHY PERIPHERAL
     Dosage: 75 MG, 3X/DAY
     Route: 048
  4. NEURONTIN [Suspect]
     Indication: NEUROPATHY PERIPHERAL
  5. LYRICA [Suspect]
     Indication: PAIN
     Dosage: 225 MG, 3X/DAY
     Route: 048

REACTIONS (7)
  - LIMB DISCOMFORT [None]
  - ANGER [None]
  - WITHDRAWAL SYNDROME [None]
  - PAIN [None]
  - SUICIDAL IDEATION [None]
  - GAIT DISTURBANCE [None]
  - PAIN IN EXTREMITY [None]
